FAERS Safety Report 6565304-5 (Version None)
Quarter: 2010Q1

REPORT INFORMATION
  Report Type: 
  Country: None (occurrence: None)
  Receive Date: 20100201
  Receipt Date: 20100122
  Transmission Date: 20100710
  Serious: Yes (Hospitalization)
  Sender: FDA-Public Use
  Company Number: TW-ROCHE-681217

PATIENT
  Sex: Female

DRUGS (3)
  1. AVASTIN [Suspect]
     Route: 065
     Dates: start: 20090101, end: 20100120
  2. CHINESE MEDICINE NOS [Suspect]
     Dosage: DRUG: CHINESE HERB NOS
     Route: 065
  3. CHEMOTHERAPY NOS [Concomitant]

REACTIONS (1)
  - COMA HEPATIC [None]
